FAERS Safety Report 4322261-X (Version None)
Quarter: 2004Q1

REPORT INFORMATION
  Report Type: 
  Country: None (occurrence: None)
  Receive Date: 20040319
  Receipt Date: 20040311
  Transmission Date: 20041129
  Serious: Yes (Life-Threatening, Hospitalization)
  Sender: FDA-Public Use
  Company Number: 04P-163-0253208-00

PATIENT
  Age: 2 Year
  Sex: Male

DRUGS (1)
  1. RYTHMOL [Suspect]
     Indication: ACCIDENTAL OVERDOSE
     Dosage: 1800.0 MG (150.0 MG, 12 IN 1 D); PER ORAL
     Route: 048

REACTIONS (10)
  - ACCIDENTAL OVERDOSE [None]
  - ATRIOVENTRICULAR BLOCK FIRST DEGREE [None]
  - BLOOD PRESSURE DECREASED [None]
  - BRADYCARDIA [None]
  - CARDIOPULMONARY FAILURE [None]
  - CONVULSION [None]
  - ELECTROMECHANICAL DISSOCIATION [None]
  - NODAL RHYTHM [None]
  - TACHYCARDIA [None]
  - VOMITING [None]
